FAERS Safety Report 17430469 (Version 2)
Quarter: 2020Q1

REPORT INFORMATION
  Report Type: Report from Study
  Country: CA (occurrence: CA)
  Receive Date: 20200218
  Receipt Date: 20200218
  Transmission Date: 20200409
  Serious: Yes (Death)
  Sender: FDA-Public Use
  Company Number: CA-PFIZER INC-2020060897

PATIENT

DRUGS (5)
  1. HEPARIN SODIUM. [Suspect]
     Active Substance: HEPARIN SODIUM
     Indication: DEEP VEIN THROMBOSIS
     Dosage: UNK CONTINUOUS I.V. INFUSION
     Route: 041
  2. WARFARIN [Concomitant]
     Active Substance: WARFARIN
     Indication: DEEP VEIN THROMBOSIS
     Dosage: 10 MG, UNK
  3. HEPARIN SODIUM. [Suspect]
     Active Substance: HEPARIN SODIUM
     Dosage: 5000 IU, UNK (STANDARD HEPARIN IN 500 ML OF A 5 PERCENT DEXTROSE SOLUTION, WITH32 ML ADMINISTERED/HR
     Route: 040
  4. DEXTROSE. [Suspect]
     Active Substance: DEXTROSE
     Dosage: UNK (STANDARD HEPARIN IN 500 ML OF A 5 PERCENT DEXTROSE SOLUTION)
  5. HEPARIN SODIUM. [Suspect]
     Active Substance: HEPARIN SODIUM
     Dosage: 20000 IU, UNK (CONTINUOUS INFUSION, 500 ML OF A 5 PERCENT DEXTROSE SOLUTION WITH 32 ML /HR)

REACTIONS (1)
  - Pulmonary embolism [Fatal]
